FAERS Safety Report 6265088-4 (Version None)
Quarter: 2009Q3

REPORT INFORMATION
  Report Type: 
  Country: None (occurrence: None)
  Receive Date: 20090708
  Receipt Date: 20090708
  Transmission Date: 20100115
  Serious: Yes (Life-Threatening)
  Sender: FDA-Public Use
  Company Number: None

PATIENT
  Age: 72 Year
  Sex: Male
  Weight: 103.4201 kg

DRUGS (2)
  1. CRESTOR [Suspect]
     Indication: BLOOD CHOLESTEROL INCREASED
     Dosage: 20 MG ONCE A DAY ABOUT 2-3 YRS
  2. CRESTOR [Suspect]
     Indication: DIABETES MELLITUS
     Dosage: 20 MG ONCE A DAY ABOUT 2-3 YRS

REACTIONS (1)
  - LABORATORY TEST ABNORMAL [None]
